FAERS Safety Report 5033731-3 (Version None)
Quarter: 2006Q2

REPORT INFORMATION
  Report Type: 
  Country: None (occurrence: None)
  Receive Date: 20060623
  Receipt Date: 20060602
  Transmission Date: 20061013
  Serious: Yes (Hospitalization, Other)
  Sender: FDA-Public Use
  Company Number: JP-MERCK-0606USA01304

PATIENT
  Age: 53 Year
  Sex: Male
  Weight: 69 kg

DRUGS (2)
  1. PROPECIA [Suspect]
     Indication: ALOPECIA
     Route: 048
     Dates: start: 20060301, end: 20060524
  2. PROPECIA [Suspect]
     Route: 048
     Dates: start: 20060101

REACTIONS (5)
  - CHROMATURIA [None]
  - EPSTEIN-BARR VIRUS INFECTION [None]
  - HEPATIC ENZYME ABNORMAL [None]
  - JAUNDICE [None]
  - LIVER DISORDER [None]
